FAERS Safety Report 4824236-0 (Version None)
Quarter: 2005Q4

REPORT INFORMATION
  Report Type: 
  Country: None (occurrence: None)
  Receive Date: 20051108
  Receipt Date: 20051028
  Transmission Date: 20060501
  Serious: Yes (Hospitalization, Other)
  Sender: FDA-Public Use
  Company Number: 2005143228

PATIENT
  Age: 59 Year
  Sex: Male
  Weight: 81.6475 kg

DRUGS (11)
  1. ZOLOFT [Suspect]
     Indication: FEELING OF RELAXATION
     Dosage: 100 MG
  2. ARICEPT [Suspect]
     Indication: DEMENTIA ALZHEIMER'S TYPE
     Dosage: 5 MG (1 IN 1 D),
     Dates: start: 20050811
  3. ERYTHROMYCIN [Suspect]
     Indication: INFLUENZA LIKE ILLNESS
     Dates: start: 20050928
  4. PLAVIX [Concomitant]
  5. COATED ASPIRIN (ACETYLSALICYLIC ACID) [Concomitant]
  6. ISMO [Concomitant]
  7. TOPROL-XL [Concomitant]
  8. ZOCOR [Concomitant]
  9. SULAR [Concomitant]
  10. VITAMIN C (VITAMIN C) [Concomitant]
  11. VITAMIN B (VITAMIN B) [Concomitant]

REACTIONS (6)
  - ARRHYTHMIA [None]
  - DEMENTIA ALZHEIMER'S TYPE [None]
  - HALLUCINATION, VISUAL [None]
  - INFLUENZA LIKE ILLNESS [None]
  - MYOCARDIAL INFARCTION [None]
  - UNEVALUABLE EVENT [None]
